FAERS Safety Report 16248989 (Version 1)
Quarter: 2019Q2

REPORT INFORMATION
  Report Type: Spontaneous
  Country: FR (occurrence: FR)
  Receive Date: 20190429
  Receipt Date: 20190429
  Transmission Date: 20190711
  Serious: Yes (Death)
  Sender: FDA-Public Use
  Company Number: FR-ACCORD-124564

PATIENT
  Age: 93 Year
  Sex: Female
  Weight: 80 kg

DRUGS (1)
  1. ALLOPURINOL. [Suspect]
     Active Substance: ALLOPURINOL
     Indication: PRODUCT USED FOR UNKNOWN INDICATION
     Dosage: UNSPECIFIED
     Route: 048
     Dates: start: 20190105, end: 20190202

REACTIONS (5)
  - Necrotising ulcerative gingivostomatitis [Fatal]
  - Decreased appetite [Fatal]
  - Agranulocytosis [Fatal]
  - Pyrexia [Fatal]
  - Drug reaction with eosinophilia and systemic symptoms [Fatal]

NARRATIVE: CASE EVENT DATE: 20190202
